FAERS Safety Report 23323030 (Version 1)
Quarter: 2023Q4

REPORT INFORMATION
  Report Type: Spontaneous
  Country: US (occurrence: None)
  Receive Date: 20231220
  Receipt Date: 20231220
  Transmission Date: 20240110
  Serious: No
  Sender: FDA-Public Use
  Company Number: US-ROCHE-3289094

PATIENT
  Age: 67 Year
  Sex: Male

DRUGS (2)
  1. RITUXAN [Suspect]
     Active Substance: RITUXIMAB
     Indication: Product used for unknown indication
     Route: 065
  2. TAVNEOS [Suspect]
     Active Substance: AVACOPAN
     Indication: Product used for unknown indication
     Route: 048

REACTIONS (10)
  - Abdominal discomfort [Unknown]
  - Somnolence [Recovering/Resolving]
  - Peripheral swelling [Recovering/Resolving]
  - Discomfort [Recovering/Resolving]
  - Hunger [Unknown]
  - Food aversion [Unknown]
  - Weight decreased [Unknown]
  - Diarrhoea [Unknown]
  - Fatigue [Recovering/Resolving]
  - Infection [Unknown]
